FAERS Safety Report 10064707 (Version 1)
Quarter: 2014Q2

REPORT INFORMATION
  Report Type: Spontaneous
  Country: US (occurrence: None)
  Receive Date: 20140407
  Receipt Date: 20140407
  Transmission Date: 20141212
  Serious: Yes (Hospitalization)
  Sender: FDA-Public Use
  Company Number: None

PATIENT
  Age: 66 Year
  Sex: Male
  Weight: 129.5 kg

DRUGS (1)
  1. CLINDAMYCIN [Suspect]
     Route: 048
     Dates: start: 20130916, end: 20130926

REACTIONS (2)
  - Drug eruption [None]
  - Skin exfoliation [None]
